FAERS Safety Report 21480139 (Version 2)
Quarter: 2022Q4

REPORT INFORMATION
  Report Type: Spontaneous
  Country: CA (occurrence: CA)
  Receive Date: 20221019
  Receipt Date: 20221109
  Transmission Date: 20230112
  Serious: Yes (Disabling, Other)
  Sender: FDA-Public Use
  Company Number: CA-OTSUKA-2022_048447

PATIENT
  Age: 35 Year
  Sex: Female

DRUGS (2)
  1. ABILIFY MAINTENA [Suspect]
     Active Substance: ARIPIPRAZOLE
     Indication: Perinatal depression
     Dosage: 400 MG, Q 28 DAYS
     Route: 065
  2. ABILIFY MAINTENA [Suspect]
     Active Substance: ARIPIPRAZOLE
     Indication: Psychotic disorder

REACTIONS (6)
  - Perinatal depression [Unknown]
  - Feeling abnormal [Recovering/Resolving]
  - Akathisia [Recovering/Resolving]
  - Anxiety [Recovering/Resolving]
  - Tremor [Recovering/Resolving]
  - Product use in unapproved indication [Unknown]
